FAERS Safety Report 10156497 (Version 4)
Quarter: 2014Q3

REPORT INFORMATION
  Report Type: Spontaneous
  Country: IT (occurrence: IT)
  Receive Date: 20140507
  Receipt Date: 20140717
  Transmission Date: 20150326
  Serious: Yes (Hospitalization)
  Sender: FDA-Public Use
  Company Number: IT-ROCHE-1396312

PATIENT
  Age: 69 Year
  Sex: Male
  Weight: 80 kg

DRUGS (7)
  1. ROCEFIN [Suspect]
     Active Substance: CEFTRIAXONE SODIUM
     Indication: HYPERPYREXIA
     Route: 030
     Dates: start: 20140330, end: 20140404
  2. AZATHIOPRINE. [Concomitant]
     Active Substance: AZATHIOPRINE
  3. COUMADIN [Interacting]
     Active Substance: WARFARIN SODIUM
     Indication: THROMBOSIS PROPHYLAXIS
     Route: 048
     Dates: start: 20140101, end: 20140404
  4. DELTACORTENE [Concomitant]
     Active Substance: PREDNISONE
     Indication: POLYMYOSITIS
  5. APROVEL [Concomitant]
     Active Substance: IRBESARTAN
     Indication: MYOCARDIAL ISCHAEMIA
  6. LEVOXACIN [Interacting]
     Active Substance: LEVOFLOXACIN
     Indication: HYPERPYREXIA
     Route: 048
     Dates: start: 20140330, end: 20140404
  7. CARDURA [Concomitant]
     Active Substance: DOXAZOSIN MESYLATE
     Indication: MYOCARDIAL ISCHAEMIA

REACTIONS (2)
  - International normalised ratio increased [Unknown]
  - Drug interaction [Unknown]

NARRATIVE: CASE EVENT DATE: 20140404
